FAERS Safety Report 21927722 (Version 1)
Quarter: 2023Q1

REPORT INFORMATION
  Report Type: Spontaneous
  Country: US (occurrence: US)
  Receive Date: 20230130
  Receipt Date: 20230130
  Transmission Date: 20230418
  Serious: No
  Sender: FDA-Public Use
  Company Number: US-PFIZER INC-PV202200086931

PATIENT
  Age: 61 Year
  Sex: Male

DRUGS (1)
  1. INLYTA [Suspect]
     Active Substance: AXITINIB
     Dosage: 5 MG, CYCLIC (TWICE DAILY FOR 5 DAYS, OFF 2 DAYS; REPEAT)
     Route: 048

REACTIONS (2)
  - Off label use [Unknown]
  - Rash pruritic [Unknown]
